FAERS Safety Report 23408154 (Version 1)
Quarter: 2024Q1

REPORT INFORMATION
  Report Type: Spontaneous
  Country: US (occurrence: None)
  Receive Date: 20240117
  Receipt Date: 20240117
  Transmission Date: 20240410
  Serious: Yes (Hospitalization, Other)
  Sender: FDA-Public Use
  Company Number: US-ARIS GLOBAL-MDD202302-000689

PATIENT
  Age: 57 Year
  Sex: Female

DRUGS (1)
  1. MYOBLOC [Suspect]
     Active Substance: RIMABOTULINUMTOXINB
     Indication: Product used for unknown indication
     Dosage: NOT PROVIDED
     Route: 058

REACTIONS (1)
  - Migraine [Unknown]
